FAERS Safety Report 11404316 (Version 4)
Quarter: 2015Q4

REPORT INFORMATION
  Report Type: Report from Study
  Country: AT (occurrence: AT)
  Receive Date: 20150821
  Receipt Date: 20151015
  Transmission Date: 20160304
  Serious: Yes (Death, Life-Threatening, Other)
  Sender: FDA-Public Use
  Company Number: AT-AMGEN-AUTCT2015085029

PATIENT
  Age: 23 Year
  Sex: Male
  Weight: 73.9 kg

DRUGS (39)
  1. MIDAZOLAM [Concomitant]
     Active Substance: MIDAZOLAM\MIDAZOLAM HYDROCHLORIDE
     Dosage: 3 - 7.5 MG, UNK
     Route: 042
     Dates: start: 20150114, end: 20150219
  2. TAZONAM [Concomitant]
     Active Substance: TAZOBACTAM
     Dosage: 4.5 G, UNK
     Route: 042
     Dates: start: 20150128, end: 20150130
  3. VANCOMYCIN [Concomitant]
     Active Substance: VANCOMYCIN
     Dosage: 1000 MG, UNK
     Route: 042
     Dates: start: 20150128, end: 20150301
  4. NOXAFIL [Concomitant]
     Active Substance: POSACONAZOLE
     Dosage: 200 MG, UNK
     Route: 048
     Dates: start: 20150115, end: 20150302
  5. FOLSAN [Concomitant]
     Active Substance: FOLIC ACID
     Dosage: 5 MG, UNK
     Route: 048
     Dates: start: 20150114, end: 20150225
  6. AVELOX [Concomitant]
     Active Substance: MOXIFLOXACIN HYDROCHLORIDE
     Dosage: 400 MG, UNK
     Route: 048
     Dates: start: 20150208, end: 20150222
  7. MUCOBENE [Concomitant]
     Dosage: 600 MG, UNK
     Route: 048
     Dates: start: 20150212, end: 20150228
  8. HALCION [Concomitant]
     Active Substance: TRIAZOLAM
     Dosage: 0.25 MG, UNK
     Route: 048
     Dates: start: 20150117, end: 20150124
  9. CODIDOL [Concomitant]
     Dosage: 60-90 MG, UNK
     Route: 048
     Dates: start: 20150126, end: 20150228
  10. ERYTHROCYTES [Concomitant]
     Active Substance: HUMAN RED BLOOD CELL
     Dosage: 350 ML, UNK
     Route: 042
     Dates: start: 20150114, end: 20150215
  11. PLATELETS [Concomitant]
     Active Substance: HUMAN PLATELET, ALLOGENIC
     Dosage: 250 ML, UNK
     Route: 042
     Dates: start: 20150114, end: 20150227
  12. PIRITRAMIDE [Concomitant]
     Active Substance: PIRITRAMIDE
     Dosage: 1 UNK, UNK
     Route: 042
     Dates: start: 20150130, end: 20150301
  13. PANTOLOC                           /01263204/ [Concomitant]
     Active Substance: PANTOPRAZOLE SODIUM
     Dosage: 20-40 MG, UNK
     Route: 048
     Dates: start: 20150115, end: 20150228
  14. PASPERTIN                          /00041902/ [Concomitant]
     Active Substance: METOCLOPRAMIDE HYDROCHLORIDE
     Dosage: 1 UNK, UNK
     Route: 042
     Dates: start: 20150127, end: 20150127
  15. DEXAMETHASONE. [Concomitant]
     Active Substance: DEXAMETHASONE
     Dosage: 4-20 MG, UNK
     Dates: start: 20150116, end: 20150225
  16. LASIX [Concomitant]
     Active Substance: FUROSEMIDE
     Dosage: 40 MG, UNK
     Route: 048
     Dates: start: 20150126, end: 20150215
  17. MOTILIUM [Concomitant]
     Active Substance: DOMPERIDONE
     Dosage: 10 MG, UNK
     Route: 048
     Dates: start: 20150126, end: 20150203
  18. FAMVIR [Concomitant]
     Active Substance: FAMCICLOVIR
     Dosage: 250 MG, UNK
     Route: 048
     Dates: start: 20150114, end: 20150228
  19. URBASON                            /00049601/ [Concomitant]
     Active Substance: METHYLPREDNISOLONE
     Dosage: 64-200 MG, UNK
     Route: 042
     Dates: start: 20150215, end: 20150226
  20. LIDAPRIM                           /00525601/ [Concomitant]
     Dosage: 800 MG, UNK
     Route: 048
     Dates: start: 20150114, end: 20150302
  21. TRADOLAN [Concomitant]
     Active Substance: TRAMADOL
     Dosage: 50 MG, UNK
     Route: 048
     Dates: start: 20150218, end: 20150218
  22. RISPERIDON [Concomitant]
     Active Substance: RISPERIDONE
     Dosage: 1 MG, UNK
     Route: 048
     Dates: start: 20150122, end: 20150122
  23. UROSIN                             /00003301/ [Concomitant]
     Dosage: 150-300 MG, UNK
     Route: 048
     Dates: start: 20150115, end: 20150216
  24. DICLOSTAD [Concomitant]
     Dosage: 1 UNK, UNK
     Route: 062
     Dates: start: 20150121, end: 20150122
  25. CEFTRIAXON [Concomitant]
     Active Substance: CEFTRIAXONE
     Dosage: 2 G, UNK
     Route: 042
     Dates: start: 20150128, end: 20150202
  26. PARACETAMOL [Concomitant]
     Active Substance: ACETAMINOPHEN
     Dosage: 500 - 1000 MG, UNK
     Dates: start: 20150122, end: 20150301
  27. FORTECORTIN                        /00016001/ [Concomitant]
     Active Substance: DEXAMETHASONE
     Dosage: 4-16 MG, UNK
     Route: 048
     Dates: start: 20150114, end: 20150219
  28. MEROPENEM. [Concomitant]
     Active Substance: MEROPENEM
     Dosage: 1 G, UNK
     Route: 042
     Dates: start: 20150216, end: 20150227
  29. BLINATUMOMAB [Suspect]
     Active Substance: BLINATUMOMAB
     Indication: ACUTE LYMPHOCYTIC LEUKAEMIA
     Dosage: 9 MUG, UNK
     Route: 041
     Dates: start: 20150116, end: 20150225
  30. HYDAL [Concomitant]
     Active Substance: HYDROMORPHONE HYDROCHLORIDE
     Dosage: 1.3 MG, UNK
     Route: 048
     Dates: start: 20150122, end: 20150123
  31. METHOTREXATE (METHOTREXATE SODIUM) [Concomitant]
     Active Substance: METHOTREXATE SODIUM
     Dosage: 12-15 MG, UNK
     Route: 037
     Dates: start: 20150114, end: 20150219
  32. DORMICUM                           /00036201/ [Concomitant]
     Active Substance: NITRAZEPAM
     Dosage: 7.5 MG, UNK
     Route: 048
     Dates: start: 20150121, end: 20150121
  33. KALIUM CHLORID [Concomitant]
     Dosage: 2 UNK, UNK
     Route: 048
     Dates: start: 20150114, end: 20150115
  34. DICLOFENAC [Concomitant]
     Active Substance: DICLOFENAC
     Dosage: 1 UNK, UNK
     Route: 042
     Dates: start: 20150210, end: 20150210
  35. ZOFRAN [Concomitant]
     Active Substance: ONDANSETRON HYDROCHLORIDE
     Dosage: 4 MG, UNK
     Route: 048
     Dates: start: 20150115, end: 20150212
  36. TEMESTA                            /00273201/ [Concomitant]
     Active Substance: LORAZEPAM
     Dosage: 1-2 MG, UNK
     Route: 048
     Dates: start: 20150126, end: 20150301
  37. CYTARABIN [Concomitant]
     Active Substance: CYTARABINE
     Dosage: 40 MG, UNK
     Route: 037
     Dates: start: 20150114, end: 20150219
  38. KALIORAL                           /00252502/ [Concomitant]
     Dosage: 1 UNK, UNK
     Route: 048
     Dates: start: 20150211, end: 20150212
  39. DIBONDRIN [Concomitant]
     Dosage: 1 UNK, UNK
     Route: 042
     Dates: start: 20150217, end: 20150226

REACTIONS (1)
  - Leukoencephalopathy [Not Recovered/Not Resolved]

NARRATIVE: CASE EVENT DATE: 20150223
